FAERS Safety Report 7742503-8 (Version None)
Quarter: 2011Q3

REPORT INFORMATION
  Report Type: 
  Country: None (occurrence: None)
  Receive Date: 20110902
  Receipt Date: 20110823
  Transmission Date: 20111222
  Serious: Yes (Other)
  Sender: FDA-Public Use
  Company Number: 2011SP039969

PATIENT
  Age: 57 Year
  Sex: Male
  Weight: 85 kg

DRUGS (11)
  1. TOLEDOMIN [Concomitant]
  2. ROHYPNOL [Concomitant]
  3. VOLTAREN [Concomitant]
  4. REBETOL [Suspect]
     Indication: HEPATITIS C
     Dosage: 1000 MG;QD;PO
     Route: 048
     Dates: start: 20101006, end: 20110127
  5. MEILAX [Concomitant]
  6. ZOLPIDEM [Concomitant]
  7. INTERFERON [Suspect]
     Indication: HEPATITIS C
     Dosage: 6 MIU;QD;IV 6 MIU;TIW;IV
     Route: 042
     Dates: start: 20101006, end: 20101102
  8. INTERFERON [Suspect]
     Indication: HEPATITIS C
     Dosage: 6 MIU;QD;IV 6 MIU;TIW;IV
     Route: 042
     Dates: start: 20101104, end: 20110121
  9. NEUOMIL [Concomitant]
  10. ANAFRANIL [Concomitant]
  11. TSUMURA DAI-KENCHU-TO [Concomitant]

REACTIONS (1)
  - BLOOD GLUCOSE INCREASED [None]
